FAERS Safety Report 12818771 (Version 1)
Quarter: 2016Q4

REPORT INFORMATION
  Report Type: Spontaneous
  Country: US (occurrence: US)
  Receive Date: 20161006
  Receipt Date: 20161006
  Transmission Date: 20170207
  Serious: Yes (Other)
  Sender: FDA-Public Use
  Company Number: US-AMGEN-USASP2016134139

PATIENT
  Age: 76 Year
  Sex: Female

DRUGS (5)
  1. VITAMIN D [Concomitant]
     Active Substance: CHOLECALCIFEROL
  2. LASIX [Concomitant]
     Active Substance: FUROSEMIDE
  3. CALCIUM [Concomitant]
     Active Substance: CALCIUM
     Dosage: 3000 IU, UNK
  4. LISINOPRIL. [Concomitant]
     Active Substance: LISINOPRIL
  5. PROLIA [Suspect]
     Active Substance: DENOSUMAB
     Indication: OSTEOPOROSIS POSTMENOPAUSAL
     Dosage: UNK
     Route: 065

REACTIONS (3)
  - Infection [Unknown]
  - Vomiting [Unknown]
  - Abdominal distension [Unknown]

NARRATIVE: CASE EVENT DATE: 201609
